FAERS Safety Report 9106836 (Version 3)
Quarter: 2013Q2

REPORT INFORMATION
  Report Type: Report from Study
  Country: US (occurrence: US)
  Receive Date: 20130221
  Receipt Date: 20130412
  Transmission Date: 20140414
  Serious: Yes (Hospitalization)
  Sender: FDA-Public Use
  Company Number: US-JNJFOC-20130210121

PATIENT
  Age: 10 Year
  Sex: Female
  Weight: 55.7 kg

DRUGS (4)
  1. REMICADE [Suspect]
     Indication: CROHN^S DISEASE
     Route: 042
     Dates: start: 20120414, end: 20120624
  2. HUMIRA [Concomitant]
     Indication: CROHN^S DISEASE
     Route: 065
     Dates: start: 20120727
  3. 5-ASA [Concomitant]
     Route: 048
  4. CETIRIZINE [Concomitant]
     Route: 065

REACTIONS (2)
  - Crohn^s disease [Recovered/Resolved]
  - Clostridium difficile infection [Not Recovered/Not Resolved]
